FAERS Safety Report 24577077 (Version 1)
Quarter: 2024Q4

REPORT INFORMATION
  Report Type: Spontaneous
  Country: US (occurrence: None)
  Receive Date: 20241101
  Receipt Date: 20241101
  Transmission Date: 20250115
  Serious: Yes (Hospitalization)
  Sender: Public
  Company Number: None

PATIENT
  Age: 38 Year
  Sex: Female
  Weight: 67.5 kg

DRUGS (13)
  1. WEGOVY [Suspect]
     Active Substance: SEMAGLUTIDE
     Indication: Weight decreased
     Dosage: FREQUENCY : WEEKLY;?
     Route: 058
     Dates: start: 20240901, end: 20241017
  2. CYMBALTA [Concomitant]
     Active Substance: DULOXETINE HYDROCHLORIDE
  3. HYDROXYZINE [Concomitant]
     Active Substance: HYDROXYZINE HYDROCHLORIDE
  4. VALIUM [Concomitant]
     Active Substance: DIAZEPAM
  5. TRAZODONE [Concomitant]
     Active Substance: TRAZODONE HYDROCHLORIDE
  6. TYLENOL [Concomitant]
     Active Substance: ACETAMINOPHEN
  7. ZOFRAN [Concomitant]
     Active Substance: ONDANSETRON HYDROCHLORIDE
  8. PRILOSEC [Concomitant]
     Active Substance: OMEPRAZOLE MAGNESIUM
  9. MINT TEA [Concomitant]
  10. GINGER ALE [Concomitant]
  11. GINGER [Concomitant]
     Active Substance: GINGER
  12. PEPPERMINTS [Concomitant]
  13. CRACKERS [Concomitant]

REACTIONS (11)
  - Bedridden [None]
  - Abdominal pain upper [None]
  - Abdominal pain [None]
  - Vomiting [None]
  - Diarrhoea [None]
  - Unevaluable event [None]
  - Headache [None]
  - Dizziness [None]
  - Visual impairment [None]
  - Back pain [None]
  - Ovarian cyst [None]

NARRATIVE: CASE EVENT DATE: 20241016
